FAERS Safety Report 6990815-8 (Version None)
Quarter: 2010Q3

REPORT INFORMATION
  Report Type: 
  Country: None (occurrence: None)
  Receive Date: 20100916
  Receipt Date: 20100818
  Transmission Date: 20110219
  Serious: Yes (Other)
  Sender: FDA-Public Use
  Company Number: US-PFIZER INC-2010090613

PATIENT
  Sex: Female
  Weight: 56.2 kg

DRUGS (2)
  1. BLINDED *NO SUBJECT DRUG [Suspect]
     Indication: EPILEPSY
     Dosage: UNK
     Route: 048
     Dates: start: 20100426, end: 20100719
  2. PREGABALIN [Suspect]
     Indication: EPILEPSY
     Dosage: UNK
     Route: 048
     Dates: start: 20100426, end: 20100719

REACTIONS (1)
  - GRAND MAL CONVULSION [None]
